FAERS Safety Report 7344535-0 (Version None)
Quarter: 2011Q1

REPORT INFORMATION
  Report Type: 
  Country: None (occurrence: None)
  Receive Date: 20110310
  Receipt Date: 20110228
  Transmission Date: 20110831
  Serious: Yes (Life-Threatening, Hospitalization, Other)
  Sender: FDA-Public Use
  Company Number: JP-CELGENEUS-087-21880-10120756

PATIENT
  Sex: Male

DRUGS (11)
  1. LENADEX [Suspect]
     Indication: MULTIPLE MYELOMA
     Dosage: 40 MILLIGRAM
     Route: 048
     Dates: start: 20100918, end: 20100921
  2. ZYLORIC [Concomitant]
     Indication: HYPERTENSION
     Dosage: 100 MILLIGRAM
     Route: 048
     Dates: start: 20100918, end: 20100929
  3. MUCOSTA [Concomitant]
     Dosage: 300 MILLIGRAM
     Route: 048
     Dates: start: 20100918, end: 20100929
  4. LUPRAC [Concomitant]
     Indication: RENAL DISORDER
     Dosage: 8 MILLIGRAM
     Route: 048
     Dates: start: 20100918, end: 20100929
  5. REVLIMID [Suspect]
     Indication: MULTIPLE MYELOMA
     Dosage: 25 MILLIGRAM
     Route: 048
     Dates: start: 20100918, end: 20100921
  6. ASPIRIN [Concomitant]
     Indication: PROPHYLAXIS
     Dosage: 100 MILLIGRAM
     Route: 048
     Dates: start: 20100918, end: 20100921
  7. KALIMATE [Concomitant]
     Indication: RENAL DISORDER
     Dosage: 15 MILLIGRAM
     Route: 048
     Dates: start: 20100918, end: 20100929
  8. CELECOX [Concomitant]
     Dosage: 200 MILLIGRAM
     Route: 048
     Dates: start: 20100918, end: 20100929
  9. LECTISOL [Concomitant]
     Indication: PROPHYLAXIS
     Dosage: 100 MILLIGRAM
     Route: 048
     Dates: start: 20100918, end: 20100929
  10. ZOVIRAX [Concomitant]
     Indication: PROPHYLAXIS
     Dosage: 200 MILLIGRAM
     Route: 048
     Dates: start: 20100918, end: 20100929
  11. TAKEPRON [Concomitant]
     Dosage: 30 MILLIGRAM
     Route: 048
     Dates: start: 20100918, end: 20100929

REACTIONS (4)
  - PLATELET COUNT DECREASED [None]
  - MELAENA [None]
  - WHITE BLOOD CELL COUNT DECREASED [None]
  - DIARRHOEA [None]
